FAERS Safety Report 5912955-4 (Version None)
Quarter: 2008Q4

REPORT INFORMATION
  Report Type: 
  Country: None (occurrence: None)
  Receive Date: 20081008
  Receipt Date: 20081001
  Transmission Date: 20090506
  Serious: Yes (Death)
  Sender: FDA-Public Use
  Company Number: BR-PFIZER INC-2008083290

PATIENT
  Sex: Female

DRUGS (1)
  1. CELEBRA [Suspect]
     Route: 048

REACTIONS (1)
  - DEATH [None]
